FAERS Safety Report 25996637 (Version 1)
Quarter: 2025Q4

REPORT INFORMATION
  Report Type: Report from Study
  Country: US (occurrence: US)
  Receive Date: 20251104
  Receipt Date: 20251104
  Transmission Date: 20260118
  Serious: Yes (Other)
  Sender: ABBVIE
  Company Number: US-ABBVIE-6359542

PATIENT
  Age: 57 Year
  Sex: Male

DRUGS (9)
  1. SKYRIZI [Suspect]
     Active Substance: RISANKIZUMAB-RZAA
     Indication: Psoriasis
     Dosage: TIME INTERVAL: TOTAL: FORM STRENGTH : 150MG/ML
     Route: 058
     Dates: start: 202501, end: 202501
  2. SKYRIZI [Suspect]
     Active Substance: RISANKIZUMAB-RZAA
     Indication: Psoriasis
     Dosage: FORM STRENGTH : 150MG/ML
     Route: 058
     Dates: start: 202510, end: 202510
  3. SKYRIZI [Suspect]
     Active Substance: RISANKIZUMAB-RZAA
     Dosage: TIME INTERVAL: TOTAL: FORM STRENGTH : 150MG/ML
     Route: 058
     Dates: start: 202509, end: 202509
  4. ISONIAZID [Concomitant]
     Active Substance: ISONIAZID
     Indication: Latent tuberculosis
  5. RIFAMPIN [Concomitant]
     Active Substance: RIFAMPIN
     Indication: Latent tuberculosis
  6. BIKTARVY [Concomitant]
     Active Substance: BICTEGRAVIR SODIUM\EMTRICITABINE\TENOFOVIR ALAFENAMIDE FUMARATE
     Indication: Product used for unknown indication
  7. SERTRALINE [Concomitant]
     Active Substance: SERTRALINE HYDROCHLORIDE
     Indication: Product used for unknown indication
  8. COVID-19 VACCINE NOS [Suspect]
     Active Substance: COVID-19 VACCINE
     Indication: Product used for unknown indication
     Route: 065
     Dates: start: 20251012
  9. INFLUENZA VIRUS VACCINE [Suspect]
     Active Substance: INFLUENZA VIRUS VACCINE
     Indication: Product used for unknown indication
     Route: 065
     Dates: start: 20251010

REACTIONS (9)
  - Latent tuberculosis [Recovered/Resolved]
  - Wrong technique in product usage process [Not Recovered/Not Resolved]
  - Device use error [Not Recovered/Not Resolved]
  - Influenza like illness [Unknown]
  - Injection site discharge [Not Recovered/Not Resolved]
  - Pyrexia [Unknown]
  - Device issue [Unknown]
  - Pain in extremity [Unknown]
  - Mycobacterium tuberculosis complex test positive [Unknown]

NARRATIVE: CASE EVENT DATE: 20240101
